FAERS Safety Report 4563010-X (Version None)
Quarter: 2005Q1

REPORT INFORMATION
  Report Type: 
  Country: None (occurrence: None)
  Receive Date: 20050127
  Receipt Date: 20050113
  Transmission Date: 20050727
  Serious: Yes (Hospitalization, Other)
  Sender: FDA-Public Use
  Company Number: AU-ABBOTT-05P-008-0286717-00

PATIENT
  Sex: Male
  Weight: 69 kg

DRUGS (10)
  1. FGF TABLETS [Suspect]
     Indication: ANAEMIA
     Route: 065
     Dates: start: 20040801
  2. HUMIRA [Suspect]
     Indication: CROHN'S DISEASE
     Route: 058
     Dates: start: 20040506, end: 20041202
  3. AZATHIOPRINE [Concomitant]
     Indication: CROHN'S DISEASE
     Dates: start: 19980501
  4. AZATHIOPRINE [Concomitant]
     Dates: start: 19980201
  5. SULFASALAZINE [Concomitant]
     Indication: CROHN'S DISEASE
     Dates: start: 19980501
  6. PREDNISONE [Concomitant]
     Indication: CROHN'S DISEASE
     Dates: start: 19890101, end: 20040101
  7. MERCAPTOPURINE [Concomitant]
     Indication: CROHN'S DISEASE
     Dates: start: 20030101
  8. ROFECOXIB [Concomitant]
     Indication: JOINT ANKYLOSIS
     Dates: start: 20030701
  9. ROFECOXIB [Concomitant]
     Indication: CROHN'S DISEASE
  10. NATALIZUMAB [Concomitant]
     Indication: CROHN'S DISEASE
     Dates: start: 20020401, end: 20020724

REACTIONS (4)
  - BEZOAR [None]
  - COLONIC OBSTRUCTION [None]
  - LARGE INTESTINAL STRICTURE [None]
  - PAIN [None]
